FAERS Safety Report 8012105-7 (Version None)
Quarter: 2011Q4

REPORT INFORMATION
  Report Type: 
  Country: None (occurrence: None)
  Receive Date: 20111228
  Receipt Date: 20111219
  Transmission Date: 20120403
  Serious: Yes (Hospitalization)
  Sender: FDA-Public Use
  Company Number: JP-SANOFI-AVENTIS-2011SA084418

PATIENT
  Age: 38 Year
  Sex: Female

DRUGS (1)
  1. TAXOTERE [Suspect]
     Indication: BREAST CANCER
     Dosage: 115 MG/BODY
     Route: 065
     Dates: start: 20111205

REACTIONS (2)
  - LUNG DISORDER [None]
  - DYSPNOEA [None]
